FAERS Safety Report 19666579 (Version 1)
Quarter: 2021Q3

REPORT INFORMATION
  Report Type: Spontaneous
  Country: US (occurrence: US)
  Receive Date: 20210806
  Receipt Date: 20210806
  Transmission Date: 20211014
  Serious: Yes (Hospitalization)
  Sender: FDA-Public Use
  Company Number: None

PATIENT
  Age: 78 Year
  Sex: Male

DRUGS (22)
  1. FUROSEMIDE. [Concomitant]
     Active Substance: FUROSEMIDE
     Dates: start: 20200903
  2. GABAPENTIN. [Concomitant]
     Active Substance: GABAPENTIN
     Dates: start: 20210122
  3. METFORMIN [Concomitant]
     Active Substance: METFORMIN HYDROCHLORIDE
     Dates: start: 20210122
  4. ARNUITY ELPT INH [Concomitant]
     Dates: start: 20210204
  5. JARDIANCE [Concomitant]
     Active Substance: EMPAGLIFLOZIN
     Dates: start: 20210304
  6. ASPIRIN. [Concomitant]
     Active Substance: ASPIRIN
     Dates: start: 20210513
  7. CALTRATE [Concomitant]
     Active Substance: CALCIUM CARBONATE
     Dates: start: 20210223
  8. FEROSUL [Concomitant]
     Active Substance: FERROUS SULFATE
     Dates: start: 20210608
  9. FLUTICASONE. [Concomitant]
     Active Substance: FLUTICASONE
     Dates: start: 20210715
  10. METHIMAZOLE. [Concomitant]
     Active Substance: METHIMAZOLE
     Dates: start: 20210427
  11. CLOPIDOGREL [Concomitant]
     Active Substance: CLOPIDOGREL BISULFATE
     Dates: start: 20210707
  12. LOSARTAN. [Concomitant]
     Active Substance: LOSARTAN
     Dates: start: 20210201
  13. FERROUS SULF [Concomitant]
     Active Substance: FERROUS SULFATE
     Dates: start: 20210303
  14. VC FORTE [Concomitant]
     Dates: start: 20210317
  15. GLIPIZIDE. [Concomitant]
     Active Substance: GLIPIZIDE
     Dates: start: 20200923
  16. VITAMIN D3 [Concomitant]
     Active Substance: CHOLECALCIFEROL
     Dates: start: 20210609
  17. JANUVIA [Concomitant]
     Active Substance: SITAGLIPTIN PHOSPHATE
     Dates: start: 20210120
  18. ROSUVASTATIN. [Concomitant]
     Active Substance: ROSUVASTATIN
     Dates: start: 20210122
  19. OMEPRAZOLE. [Concomitant]
     Active Substance: OMEPRAZOLE
     Dates: start: 20210224
  20. CITALOPRAM [Concomitant]
     Active Substance: CITALOPRAM HYDROBROMIDE
     Dates: start: 20210224
  21. BASAGLAR [Concomitant]
     Active Substance: INSULIN GLARGINE
     Dates: start: 20210805
  22. STELARA [Suspect]
     Active Substance: USTEKINUMAB
     Indication: ESSENTIAL HYPERTENSION
     Dosage: ?          OTHER FREQUENCY:EVERY 8 WEEKS;?
     Route: 058
     Dates: start: 20210510

REACTIONS (1)
  - Cerebrovascular accident [None]

NARRATIVE: CASE EVENT DATE: 20210704
